FAERS Safety Report 4488174-8 (Version None)
Quarter: 2004Q4

REPORT INFORMATION
  Report Type: 
  Country: None (occurrence: None)
  Receive Date: 20041028
  Receipt Date: 20041022
  Transmission Date: 20050328
  Serious: Yes (Hospitalization, Disabling, Other)
  Sender: FDA-Public Use
  Company Number: US-JNJFOC-20040806866

PATIENT
  Sex: Female

DRUGS (1)
  1. DITROPAN XL [Suspect]
     Route: 049

REACTIONS (4)
  - CERVICAL VERTEBRAL FRACTURE [None]
  - CONDITION AGGRAVATED [None]
  - FALL [None]
  - GAIT DISTURBANCE [None]
